FAERS Safety Report 5151916-2 (Version None)
Quarter: 2006Q4

REPORT INFORMATION
  Report Type: 
  Country: None (occurrence: None)
  Receive Date: 20061106
  Receipt Date: 20061023
  Transmission Date: 20070319
  Serious: Yes (Hospitalization)
  Sender: FDA-Public Use
  Company Number: 200610329BBE

PATIENT

DRUGS (1)
  1. IMMUNE GLOBULIN INTRAVENOUS (HUMAN) [Suspect]
     Indication: MILLER FISHER SYNDROME

REACTIONS (9)
  - CEREBRAL INFARCTION [None]
  - CONVULSION [None]
  - DEPRESSED LEVEL OF CONSCIOUSNESS [None]
  - HEADACHE [None]
  - MENTAL STATUS CHANGES [None]
  - NAUSEA [None]
  - REVERSIBLE POSTERIOR LEUKOENCEPHALOPATHY SYNDROME [None]
  - VISUAL DISTURBANCE [None]
  - VOMITING [None]
